FAERS Safety Report 4643805-4 (Version None)
Quarter: 2005Q2

REPORT INFORMATION
  Report Type: 
  Country: None (occurrence: None)
  Receive Date: 20050422
  Receipt Date: 20050422
  Transmission Date: 20051028
  Serious: Yes (Other)
  Sender: FDA-Public Use
  Company Number: None

PATIENT
  Age: 73 Year
  Sex: Male
  Weight: 121.6 kg

DRUGS (10)
  1. OXYBUTYNIN CHLORIDE [Suspect]
  2. DILTIAZEM (INWOOD) [Concomitant]
  3. FOLIC ACID [Concomitant]
  4. FUROSEMIDE [Concomitant]
  5. POTASSIUM CHLORIDE [Concomitant]
  6. PREDNISONE [Concomitant]
  7. LISINOPRIL [Concomitant]
  8. TOLTERODINE TARTRATE [Concomitant]
  9. METOPROLOL TARTRATE [Concomitant]
  10. ISOSORBIDE MONONITRATE [Concomitant]

REACTIONS (1)
  - CONSTIPATION [None]
